FAERS Safety Report 22333580 (Version 1)
Quarter: 2023Q2

REPORT INFORMATION
  Report Type: Report from Study
  Country: HN (occurrence: HN)
  Receive Date: 20230517
  Receipt Date: 20230517
  Transmission Date: 20230722
  Serious: Yes (Other)
  Sender: FDA-Public Use
  Company Number: HN-002147023-NVSC2023HN110121

PATIENT
  Sex: Female

DRUGS (1)
  1. HYDROCHLOROTHIAZIDE\VALSARTAN [Suspect]
     Active Substance: HYDROCHLOROTHIAZIDE\VALSARTAN
     Indication: Hypertension
     Dosage: 160/12.5 MG, QD
     Route: 048
     Dates: start: 2003, end: 202301

REACTIONS (5)
  - Asphyxia [Unknown]
  - Hypertension [Unknown]
  - Feeling hot [Unknown]
  - Gastritis [Unknown]
  - Nausea [Unknown]

NARRATIVE: CASE EVENT DATE: 20030101
